FAERS Safety Report 25613459 (Version 2)
Quarter: 2025Q3

REPORT INFORMATION
  Report Type: Spontaneous
  Country: US (occurrence: US)
  Receive Date: 20250728
  Receipt Date: 20250801
  Transmission Date: 20251021
  Serious: Yes (Other)
  Sender: AMGEN
  Company Number: US-AMGEN-USASP2025146742

PATIENT
  Age: 75 Year
  Sex: Female

DRUGS (12)
  1. OTEZLA [Suspect]
     Active Substance: APREMILAST
     Indication: Psoriatic arthropathy
     Dosage: 30 MILLIGRAM, BID
     Route: 048
     Dates: start: 20220313
  2. LOSARTAN [Concomitant]
     Active Substance: LOSARTAN
  3. DULOXETINE [Concomitant]
     Active Substance: DULOXETINE
  4. LEVEMIR [Concomitant]
     Active Substance: INSULIN DETEMIR
  5. METFORMIN [Concomitant]
     Active Substance: METFORMIN HYDROCHLORIDE
  6. NOVOLOG [Concomitant]
     Active Substance: INSULIN ASPART
  7. LETROZOLE [Concomitant]
     Active Substance: LETROZOLE
  8. MELOXICAM [Concomitant]
     Active Substance: MELOXICAM
  9. CALTRATE [Concomitant]
     Active Substance: CALCIUM CARBONATE
  10. PRAVASTATIN [Concomitant]
     Active Substance: PRAVASTATIN
  11. VITAMIN D2 [Concomitant]
     Active Substance: ERGOCALCIFEROL
  12. CYCLOBENZAPRINE [Concomitant]
     Active Substance: CYCLOBENZAPRINE

REACTIONS (1)
  - Bladder cancer [Unknown]
